FAERS Safety Report 22382359 (Version 1)
Quarter: 2023Q2

REPORT INFORMATION
  Report Type: Spontaneous
  Country: CN (occurrence: CN)
  Receive Date: 20230530
  Receipt Date: 20230530
  Transmission Date: 20230721
  Serious: Yes (Other)
  Sender: FDA-Public Use
  Company Number: CN-SA-SAC20230529000422

PATIENT
  Age: 64 Year
  Sex: Male
  Weight: 73 kg

DRUGS (1)
  1. OXALIPLATIN [Suspect]
     Active Substance: OXALIPLATIN
     Indication: Colon cancer
     Dosage: 160 MG, QD
     Route: 041
     Dates: start: 20230521, end: 20230521

REACTIONS (4)
  - Tachypnoea [Recovered/Resolved]
  - Nasal obstruction [Recovered/Resolved]
  - Pruritus [Recovered/Resolved]
  - Chest discomfort [Recovered/Resolved]

NARRATIVE: CASE EVENT DATE: 20230521
